FAERS Safety Report 11708632 (Version 2)
Quarter: 2015Q4

REPORT INFORMATION
  Report Type: Spontaneous
  Country: US (occurrence: US)
  Receive Date: 20151104
  Receipt Date: 20151110
  Transmission Date: 20160304
  Serious: No
  Sender: FDA-Public Use
  Company Number: US-ELI_LILLY_AND_COMPANY-US201102002107

PATIENT
  Age: 76 Year
  Sex: Female

DRUGS (4)
  1. FORTEO [Suspect]
     Active Substance: TERIPARATIDE
     Indication: OSTEOPOROSIS
     Dosage: 20 UG, DAILY (1/D)
  2. FORTEO [Suspect]
     Active Substance: TERIPARATIDE
     Dosage: 20 UG, DAILY (1/D)
  3. FORTEO [Suspect]
     Active Substance: TERIPARATIDE
     Dosage: 20 UG, QD
     Route: 065
  4. FORTEO [Suspect]
     Active Substance: TERIPARATIDE
     Dosage: 20 UG, QD
     Route: 065

REACTIONS (18)
  - Joint injury [Unknown]
  - Fall [Unknown]
  - Contusion [Unknown]
  - Gait disturbance [Unknown]
  - Head injury [Unknown]
  - Fall [Recovered/Resolved]
  - Clavicle fracture [Unknown]
  - Skin injury [Unknown]
  - Drug dose omission [Unknown]
  - Contusion [Unknown]
  - Musculoskeletal pain [Unknown]
  - Arthralgia [Unknown]
  - Blood calcium increased [Unknown]
  - Parkinson^s disease [Unknown]
  - Thyroid hormones increased [Unknown]
  - Fall [Unknown]
  - Constipation [Unknown]
  - Muscle spasms [Unknown]

NARRATIVE: CASE EVENT DATE: 201101
